FAERS Safety Report 6836119-5 (Version None)
Quarter: 2010Q3

REPORT INFORMATION
  Report Type: 
  Country: None (occurrence: None)
  Receive Date: 20100713
  Receipt Date: 20100629
  Transmission Date: 20110219
  Serious: Yes (Hospitalization, Other)
  Sender: FDA-Public Use
  Company Number: CL-ROCHE-713028

PATIENT
  Sex: Male
  Weight: 92 kg

DRUGS (4)
  1. METHOXY POLYETHYLENE GLYCOL-EPOETIN BETA [Suspect]
     Indication: ANAEMIA
     Route: 065
     Dates: start: 20090401
  2. METHOXY POLYETHYLENE GLYCOL-EPOETIN BETA [Suspect]
     Route: 065
     Dates: end: 20100501
  3. RAVOTRIL [Concomitant]
     Dosage: AT NIGHT
     Route: 048
  4. FOLIC ACID [Concomitant]
     Dosage: DRUG REPORTED AS FOLISANIN
     Route: 048

REACTIONS (4)
  - ANGINA PECTORIS [None]
  - ARTHRALGIA [None]
  - HAEMATOCRIT DECREASED [None]
  - INGUINAL HERNIA [None]
